FAERS Safety Report 5714318-3 (Version None)
Quarter: 2008Q2

REPORT INFORMATION
  Report Type: 
  Country: None (occurrence: None)
  Receive Date: 20080422
  Receipt Date: 20080422
  Transmission Date: 20081010
  Serious: Yes (Life-Threatening, Hospitalization)
  Sender: FDA-Public Use
  Company Number: None

PATIENT
  Age: 73 Year
  Sex: Female

DRUGS (16)
  1. PACLITAXEL [Suspect]
     Indication: HEPATIC NEOPLASM MALIGNANT
     Dosage: 331MG ONCE IV
     Route: 042
     Dates: start: 20071012, end: 20071012
  2. DIGOXIN [Concomitant]
  3. FLUOXETINE [Concomitant]
  4. FUROSEMIDE [Concomitant]
  5. GLIMEPIRIDE [Concomitant]
  6. LEVOFLOXACIN [Concomitant]
  7. LOPERAMIDE HCL [Concomitant]
  8. LORAZEPAM [Concomitant]
  9. POTASSIUM CHLORIDE [Concomitant]
  10. PROCHLORPERAZINE [Concomitant]
  11. VALSARTAN [Concomitant]
  12. WARFARIN SODIUM [Concomitant]
  13. ATORVASTATIN [Concomitant]
  14. CALCIUM [Concomitant]
  15. CLOTRIMAZONE [Concomitant]
  16. ENOXAPARIN SODIUM [Concomitant]

REACTIONS (10)
  - ANAPHYLACTIC REACTION [None]
  - BLOOD PRESSURE IMMEASURABLE [None]
  - CARDIAC ARREST [None]
  - DRUG INEFFECTIVE [None]
  - ERYTHEMA [None]
  - FLUSHING [None]
  - NO THERAPEUTIC RESPONSE [None]
  - RESPIRATORY ARREST [None]
  - TACHYCARDIA [None]
  - URTICARIA [None]
